FAERS Safety Report 5012429-1 (Version None)
Quarter: 2006Q2

REPORT INFORMATION
  Report Type: 
  Country: None (occurrence: None)
  Receive Date: 20060411
  Receipt Date: 20051219
  Transmission Date: 20061013
  Serious: No
  Sender: FDA-Public Use
  Company Number: 2005S1000275

PATIENT
  Age: 51 Year
  Sex: Male
  Weight: 69.4 kg

DRUGS (15)
  1. CUBICIN [Suspect]
     Indication: STAPHYLOCOCCAL BACTERAEMIA
     Dosage: 5.8 MG/KG;Q24H;IV
     Route: 042
     Dates: start: 20051209, end: 20051216
  2. VANCOMYCIN [Concomitant]
  3. GENTAMICIN [Concomitant]
  4. NAFCILLIN SODIUM [Concomitant]
  5. HEPARIN [Concomitant]
  6. SENNA [Concomitant]
  7. ZINC SULFATE [Concomitant]
  8. ASCORBIC ACID [Concomitant]
  9. LACRILUBE [Concomitant]
  10. FENTANYL TRANSDERMAL SYSTEM [Concomitant]
  11. COLACE [Concomitant]
  12. CIPROFLOXACIN HCL [Concomitant]
  13. AZTREONAM [Concomitant]
  14. PAXIL [Concomitant]
  15. INSULIN [Concomitant]

REACTIONS (4)
  - DUODENAL ULCER [None]
  - HAEMORRHAGE [None]
  - INTERNATIONAL NORMALISED RATIO INCREASED [None]
  - LUNG INFECTION PSEUDOMONAL [None]
